FAERS Safety Report 25538202 (Version 1)
Quarter: 2025Q3

REPORT INFORMATION
  Report Type: Spontaneous
  Country: US (occurrence: US)
  Receive Date: 20250710
  Receipt Date: 20250710
  Transmission Date: 20251021
  Serious: Yes (Other)
  Sender: RANBAXY
  Company Number: US-SUN PHARMACEUTICAL INDUSTRIES LTD-2025R1-515752

PATIENT
  Age: 62 Year
  Sex: Female
  Weight: 77.1 kg

DRUGS (7)
  1. METFORMIN [Suspect]
     Active Substance: METFORMIN HYDROCHLORIDE
     Indication: Type 2 diabetes mellitus
     Dosage: 1000 MILLIGRAM, BID
     Route: 048
  2. INSULIN NOS [Suspect]
     Active Substance: INSULIN NOS
     Indication: Type 2 diabetes mellitus
     Route: 058
  3. INSULIN NOS [Suspect]
     Active Substance: INSULIN NOS
     Route: 058
  4. INSULIN NOS [Suspect]
     Active Substance: INSULIN NOS
     Route: 058
  5. INSULIN NOS [Suspect]
     Active Substance: INSULIN NOS
     Route: 058
  6. INSULIN NOS [Suspect]
     Active Substance: INSULIN NOS
     Route: 058
  7. MAGNESIUM OXIDE [Concomitant]
     Active Substance: MAGNESIUM OXIDE
     Indication: Myalgia
     Dosage: 400 MILLIGRAM, QD
     Route: 048

REACTIONS (3)
  - Muscle spasms [Unknown]
  - Treatment noncompliance [Unknown]
  - Therapy cessation [Unknown]
